FAERS Safety Report 10227214 (Version 5)
Quarter: 2015Q1

REPORT INFORMATION
  Report Type: Spontaneous
  Country: US (occurrence: US)
  Receive Date: 20140610
  Receipt Date: 20140610
  Transmission Date: 20150720
  Serious: Yes (Other)
  Sender: FDA-Public Use
  Company Number: US-MYLANLABS-2014S1013163

PATIENT
  Age: 17 Year
  Sex: Male

DRUGS (11)
  1. HALOPERIDOL. [Suspect]
     Active Substance: HALOPERIDOL
     Indication: SCHIZOPHRENIA, PARANOID TYPE
     Dosage: GRADUALLY INCREASED.
     Route: 065
  2. VALPROIC ACID. [Concomitant]
     Active Substance: VALPROIC ACID
     Indication: SCHIZOPHRENIA, PARANOID TYPE
     Route: 065
  3. CLONAZEPAM. [Suspect]
     Active Substance: CLONAZEPAM
     Indication: OFF LABEL USE
     Dosage: GRADUALLY TITRATED TO 2.25MG PER DAY IN DIVIDED DOSES
     Route: 065
  4. LORAZEPAM. [Suspect]
     Active Substance: LORAZEPAM
     Indication: AGITATION
     Dosage: GRADUALLY TITRATED.
     Route: 065
  5. CHLORPROMAZINE [Suspect]
     Active Substance: CHLORPROMAZINE
     Indication: SCHIZOPHRENIA, PARANOID TYPE
     Dosage: GRADUALLY INCREASED TO 300MG PER DAY IN DIVIDED DOSES OVER 5 DAYS
     Route: 065
  6. LYSERGIDE [Concomitant]
     Active Substance: LYSERGIDE
     Route: 065
  7. CLOZAPINE. [Suspect]
     Active Substance: CLOZAPINE
     Indication: SCHIZOPHRENIA, PARANOID TYPE
     Dosage: INCREASED TO 150MG PER DAY OVER 39 DAYS
     Route: 065
  8. PSILOCYBINE [Concomitant]
     Active Substance: PSILOCYBINE
     Route: 065
  9. OXYCODONE [Concomitant]
     Active Substance: OXYCODONE
     Route: 065
  10. LORAZEPAM. [Suspect]
     Active Substance: LORAZEPAM
     Indication: OFF LABEL USE
     Dosage: GRADUALLY TITRATED.
     Route: 065
  11. CLONAZEPAM. [Suspect]
     Active Substance: CLONAZEPAM
     Indication: SCHIZOPHRENIA, PARANOID TYPE
     Dosage: GRADUALLY TITRATED TO 2.25MG PER DAY IN DIVIDED DOSES
     Route: 065

REACTIONS (6)
  - Psychomotor retardation [Unknown]
  - Blunted affect [Unknown]
  - Orthostatic hypotension [Unknown]
  - Condition aggravated [Unknown]
  - Somnolence [Unknown]
  - Tachycardia [Recovered/Resolved]
